FAERS Safety Report 7869012-X (Version None)
Quarter: 2011Q4

REPORT INFORMATION
  Report Type: 
  Country: None (occurrence: None)
  Receive Date: 20111028
  Receipt Date: 20111028
  Transmission Date: 20120403
  Serious: Yes (Other)
  Sender: FDA-Public Use
  Company Number: None

PATIENT
  Sex: Male

DRUGS (1)
  1. GAMMAGARD [Suspect]
     Indication: HYPOGAMMAGLOBULINAEMIA
     Dosage: 8 GRAM Q3W IV
     Route: 042
     Dates: start: 20111019

REACTIONS (5)
  - WHEEZING [None]
  - BLISTER [None]
  - DIARRHOEA [None]
  - HEADACHE [None]
  - DYSPNOEA [None]
